FAERS Safety Report 8003126-9 (Version None)
Quarter: 2011Q4

REPORT INFORMATION
  Report Type: 
  Country: None (occurrence: None)
  Receive Date: 20111222
  Receipt Date: 20111209
  Transmission Date: 20120403
  Serious: Yes (Other)
  Sender: FDA-Public Use
  Company Number: PHHY2011BR098538

PATIENT
  Age: 86 Year
  Sex: Female

DRUGS (9)
  1. NITRENDIPINE [Concomitant]
     Indication: HYPERTENSION
     Dosage: 20 MG, 2 TABLETS DAILY
  2. EXELON [Suspect]
     Indication: DEMENTIA ALZHEIMER'S TYPE
     Dosage: 1.5 MG, BID
     Dates: start: 20090101
  3. ESCITALOPRAM OXALATE [Concomitant]
     Indication: ANXIOLYTIC THERAPY
     Dosage: 10 MG, UNK
  4. EXELON [Suspect]
     Dosage: 3 MG, BID
  5. EXELON [Suspect]
     Dosage: 4.5 MG, BID
  6. HYDROCHLOROTHIAZIDE [Concomitant]
     Indication: HYPERTENSION
     Dosage: 50 MG, QD
  7. EXELON [Suspect]
     Dosage: 1.5 MG, 1 CAPSULE IN THE MORNING AND 1 CAPSULE AT NIGHT
     Dates: start: 20111017
  8. NITRENDIPINE [Concomitant]
     Dosage: 10 MG, DAILY
  9. REQUITAN [Concomitant]
     Indication: TINNITUS
     Dosage: 120 MG, UNK

REACTIONS (7)
  - RETCHING [None]
  - HYPOPHAGIA [None]
  - TOXICITY TO VARIOUS AGENTS [None]
  - PSYCHIATRIC SYMPTOM [None]
  - VOMITING [None]
  - FALL [None]
  - QUALITY OF LIFE DECREASED [None]
